FAERS Safety Report 8165281-X (Version None)
Quarter: 2012Q1

REPORT INFORMATION
  Report Type: 
  Country: None (occurrence: None)
  Receive Date: 20120222
  Receipt Date: 20120222
  Transmission Date: 20120608
  Serious: Yes (Other)
  Sender: FDA-Public Use
  Company Number: None

PATIENT
  Sex: Female
  Weight: 65.9 kg

DRUGS (2)
  1. METHADONE HCL [Suspect]
     Indication: SPINAL FUSION SURGERY
  2. METHADONE HCL [Suspect]
     Indication: PAIN

REACTIONS (4)
  - PAIN [None]
  - WITHDRAWAL SYNDROME [None]
  - DRUG DIVERSION [None]
  - PRODUCT FORMULATION ISSUE [None]
